FAERS Safety Report 12587676 (Version 1)
Quarter: 2016Q3

REPORT INFORMATION
  Report Type: Report from Study
  Country: CA (occurrence: CA)
  Receive Date: 20160725
  Receipt Date: 20160725
  Transmission Date: 20161109
  Serious: Yes (Other)
  Sender: FDA-Public Use
  Company Number: CA-JNJFOC-20151212899

PATIENT
  Age: 44 Year
  Sex: Male
  Weight: 72.5 kg

DRUGS (1)
  1. REMICADE [Suspect]
     Active Substance: INFLIXIMAB
     Indication: CROHN^S DISEASE
     Route: 042
     Dates: start: 201201

REACTIONS (2)
  - Anal abscess [Unknown]
  - Colostomy [Unknown]

NARRATIVE: CASE EVENT DATE: 201403
